FAERS Safety Report 9525963 (Version 1)
Quarter: 2013Q1

REPORT INFORMATION
  Report Type: Spontaneous
  Country: US (occurrence: None)
  Receive Date: 20130314
  Receipt Date: 20130314
  Transmission Date: 20140127
  Serious: Yes (Other)
  Sender: FDA-Public Use
  Company Number: 1202USA03610

PATIENT
  Age: 73 Year
  Sex: Female
  Weight: 72.1 kg

DRUGS (6)
  1. IVEMEND [Suspect]
     Indication: PROPHYLAXIS OF NAUSEA AND VOMITING
     Route: 041
     Dates: start: 20111012, end: 20111012
  2. DECADRON (DEXAMETHASONE SODIUM PHOSPHATE) [Concomitant]
  3. KYTRIL (GRANISETRON HYDROCHLORIDE) [Concomitant]
  4. PEPCID I.V. (FAMOTIDINE) [Concomitant]
  5. BENADRYL (DIPHENHYDRAMINE HYDROCHLORIDE) [Concomitant]
  6. TAXOL (PACLITAXEL) [Concomitant]

REACTIONS (5)
  - Urticaria [None]
  - Hypersensitivity [None]
  - Erythema [None]
  - Pruritus [None]
  - Underdose [None]
